FAERS Safety Report 16163797 (Version 1)
Quarter: 2019Q2

REPORT INFORMATION
  Report Type: Report from Study
  Country: None (occurrence: US)
  Receive Date: 20190405
  Receipt Date: 20190405
  Transmission Date: 20190711
  Serious: Yes (Hospitalization)
  Sender: FDA-Public Use
  Company Number: US-ABBVIE-19P-163-2728420-00

PATIENT
  Age: 36 Year
  Sex: Female
  Weight: 89 kg

DRUGS (12)
  1. LEVONORGESTREL IUD [Concomitant]
     Indication: CONTRACEPTION
     Dosage: 20; MCG/HR | FREQUENCY: Q5YR
     Route: 015
     Dates: start: 201507
  2. VEDOLIZUMAB [Concomitant]
     Active Substance: VEDOLIZUMAB
     Indication: COLITIS ULCERATIVE
     Route: 041
     Dates: start: 20161107
  3. MESALAMINE-METHYLPREDNISOLONE [Concomitant]
     Indication: COLITIS ULCERATIVE
     Dosage: 4GM-40MG
     Route: 054
     Dates: start: 20140701
  4. HUMIRA [Suspect]
     Active Substance: ADALIMUMAB
     Indication: COLITIS ULCERATIVE
     Route: 058
     Dates: start: 20090629, end: 200908
  5. MESALAMINE. [Concomitant]
     Active Substance: MESALAMINE
     Indication: COLITIS ULCERATIVE
     Route: 048
     Dates: start: 20050810
  6. MESALAMINE. [Concomitant]
     Active Substance: MESALAMINE
     Route: 054
     Dates: start: 20050810
  7. HYOSCYAMINE SULFATE. [Concomitant]
     Active Substance: HYOSCYAMINE SULFATE
     Indication: ABDOMINAL PAIN
     Dosage: QID, PRN
     Route: 048
     Dates: start: 20161019
  8. MESALAMINE. [Concomitant]
     Active Substance: MESALAMINE
     Route: 048
     Dates: start: 20050810
  9. MESALAMINE RECTAL [Concomitant]
     Indication: COLITIS ULCERATIVE
     Route: 054
     Dates: start: 20050810
  10. VITAMIN B12 [Concomitant]
     Active Substance: CYANOCOBALAMIN
     Indication: ANAEMIA
     Route: 058
     Dates: start: 20160524
  11. MESALAMINE. [Concomitant]
     Active Substance: MESALAMINE
     Indication: COLITIS ULCERATIVE
     Route: 054
     Dates: start: 20120105, end: 20140701
  12. AZATHIOPRINE. [Suspect]
     Active Substance: AZATHIOPRINE
     Indication: COLITIS ULCERATIVE
     Route: 048
     Dates: start: 20070109, end: 20181130

REACTIONS (3)
  - Postoperative ileus [Recovered/Resolved]
  - Mesenteric vein thrombosis [Not Recovered/Not Resolved]
  - Medical device site cellulitis [Recovered/Resolved]

NARRATIVE: CASE EVENT DATE: 20190226
